FAERS Safety Report 16918874 (Version 2)
Quarter: 2019Q4

REPORT INFORMATION
  Report Type: Spontaneous
  Country: US (occurrence: US)
  Receive Date: 20191015
  Receipt Date: 20191120
  Transmission Date: 20200122
  Serious: Yes (Hospitalization)
  Sender: FDA-Public Use
  Company Number: NVSC2019US000895

PATIENT
  Age: 71 Year
  Sex: Female

DRUGS (2)
  1. ALPELISIB [Suspect]
     Active Substance: ALPELISIB
     Indication: BREAST CANCER
     Dosage: 300 MG, QD (3 CYCLES)
     Route: 048
     Dates: start: 20190907, end: 20191002
  2. ALPELISIB [Suspect]
     Active Substance: ALPELISIB
     Dosage: 300 MG/KG, QD
     Route: 048

REACTIONS (5)
  - Rash [Unknown]
  - Hyperglycaemia [Recovered/Resolved]
  - Nausea [Unknown]
  - Vomiting [Unknown]
  - Blood creatinine increased [Unknown]

NARRATIVE: CASE EVENT DATE: 20190924
